FAERS Safety Report 4771113-X (Version None)
Quarter: 2005Q3

REPORT INFORMATION
  Report Type: 
  Country: None (occurrence: None)
  Receive Date: 20050914
  Receipt Date: 20050901
  Transmission Date: 20060218
  Serious: Yes (Other)
  Sender: FDA-Public Use
  Company Number: 2005123220

PATIENT
  Sex: Male

DRUGS (6)
  1. CELONTIN [Suspect]
     Indication: EPILEPSY
     Dosage: 600 MG (300 MG, 1 IN 1 D), ORAL
     Route: 048
     Dates: end: 20050801
  2. ZARONTIN [Suspect]
     Indication: EPILEPSY
     Dosage: ORAL
     Route: 048
     Dates: start: 20050819
  3. LAMICTAL [Concomitant]
  4. KEPPRA [Concomitant]
  5. NEURONTIN [Concomitant]
  6. VERAPAMIL [Concomitant]

REACTIONS (3)
  - DRUG LEVEL DECREASED [None]
  - HEADACHE [None]
  - PETIT MAL EPILEPSY [None]
